FAERS Safety Report 11180008 (Version 1)
Quarter: 2015Q2

REPORT INFORMATION
  Report Type: Spontaneous
  Country: GB (occurrence: GB)
  Receive Date: 20150611
  Receipt Date: 20150611
  Transmission Date: 20150821
  Serious: Yes (Life-Threatening)
  Sender: FDA-Public Use
  Company Number: GB-NOVOPROD-451853

PATIENT
  Age: 72 Year
  Sex: Female
  Weight: 99 kg

DRUGS (10)
  1. DIGOXIN. [Concomitant]
     Active Substance: DIGOXIN
  2. THYROXINE [Concomitant]
     Active Substance: LEVOTHYROXINE
  3. BUMETANIDE. [Concomitant]
     Active Substance: BUMETANIDE
  4. LERCANIDIPINE [Concomitant]
     Active Substance: LERCANIDIPINE
  5. WARFARIN [Concomitant]
     Active Substance: WARFARIN
  6. HUMULIN I [Concomitant]
  7. VICTOZA [Suspect]
     Active Substance: LIRAGLUTIDE
     Indication: INSULIN-REQUIRING TYPE 2 DIABETES MELLITUS
     Dosage: 1.2 MG, QD
     Route: 058
     Dates: start: 20130220, end: 20140121
  8. LANSOPRAZOLE. [Concomitant]
     Active Substance: LANSOPRAZOLE
  9. PERINDOPRIL [Concomitant]
     Active Substance: PERINDOPRIL
  10. SIMVASTATIN. [Concomitant]
     Active Substance: SIMVASTATIN

REACTIONS (8)
  - Metastases to liver [Not Recovered/Not Resolved]
  - Pancreatic carcinoma metastatic [Not Recovered/Not Resolved]
  - Metastases to lung [Not Recovered/Not Resolved]
  - Fatigue [Unknown]
  - Abnormal loss of weight [Unknown]
  - Dyspnoea [Unknown]
  - Anaemia [Unknown]
  - Abdominal pain upper [Unknown]

NARRATIVE: CASE EVENT DATE: 20150427
